FAERS Safety Report 12573388 (Version 1)
Quarter: 2016Q3

REPORT INFORMATION
  Report Type: Spontaneous
  Country: US (occurrence: US)
  Receive Date: 20160720
  Receipt Date: 20160720
  Transmission Date: 20161109
  Serious: Yes (Hospitalization, Other)
  Sender: FDA-Public Use
  Company Number: US-JAZZ-2016-US-013359

PATIENT
  Sex: Male

DRUGS (1)
  1. PRIALT [Suspect]
     Active Substance: ZICONOTIDE ACETATE
     Indication: PAIN
     Dosage: 0.349 ?G, QH
     Route: 037

REACTIONS (7)
  - Coma [Unknown]
  - Amnesia [Unknown]
  - Drug ineffective [Unknown]
  - Fall [Unknown]
  - Device issue [Unknown]
  - Infection [Unknown]
  - Mental disorder [Unknown]

NARRATIVE: CASE EVENT DATE: 201601
